FAERS Safety Report 7328740-5 (Version None)
Quarter: 2011Q1

REPORT INFORMATION
  Report Type: 
  Country: None (occurrence: None)
  Receive Date: 20110303
  Receipt Date: 20110217
  Transmission Date: 20110831
  Serious: Yes (Other)
  Sender: FDA-Public Use
  Company Number: PHHY2011TW13288

PATIENT
  Sex: Female
  Weight: 80 kg

DRUGS (1)
  1. ZOLEDRONATE [Suspect]
     Indication: METASTASES TO BONE
     Dosage: 04 MG DAILY
     Route: 042
     Dates: start: 20090811, end: 20101220

REACTIONS (2)
  - OSTEONECROSIS OF JAW [None]
  - CELLULITIS [None]
